FAERS Safety Report 9420802 (Version 1)
Quarter: 2013Q3

REPORT INFORMATION
  Report Type: Spontaneous
  Country: FR (occurrence: None)
  Receive Date: 20130723
  Receipt Date: 20130723
  Transmission Date: 20140515
  Serious: Yes (Hospitalization)
  Sender: FDA-Public Use
  Company Number: DSM-2013-00665

PATIENT
  Age: 43 Year
  Sex: Female

DRUGS (1)
  1. ALTEIS [Suspect]
     Indication: HYPERTENSION
     Route: 048
     Dates: start: 20101216, end: 20130115

REACTIONS (16)
  - Weight decreased [None]
  - Malnutrition [None]
  - Intestinal villi atrophy [None]
  - Vomiting [None]
  - Helicobacter gastritis [None]
  - Colitis microscopic [None]
  - Drug ineffective [None]
  - Oedema peripheral [None]
  - Monoparesis [None]
  - Hypokalaemia [None]
  - Cell death [None]
  - Blood albumin decreased [None]
  - Alanine aminotransferase increased [None]
  - Gastric haemorrhage [None]
  - Diverticulum intestinal [None]
  - Coeliac disease [None]
